FAERS Safety Report 4571011-0 (Version None)
Quarter: 2005Q1

REPORT INFORMATION
  Report Type: 
  Country: None (occurrence: None)
  Receive Date: 20050204
  Receipt Date: 20041129
  Transmission Date: 20050727
  Serious: Yes (Hospitalization, Disabling)
  Sender: FDA-Public Use
  Company Number: US-MERCK-0411USA04118

PATIENT
  Age: 63 Year
  Sex: Female

DRUGS (8)
  1. VIOXX [Suspect]
     Indication: ARTHRITIS
     Route: 048
     Dates: start: 20030301, end: 20040501
  2. VIOXX [Suspect]
     Route: 048
     Dates: start: 20030301, end: 20040501
  3. VIOXX [Suspect]
     Indication: OSTEOARTHRITIS
     Route: 048
     Dates: start: 20030301, end: 20040501
  4. VIOXX [Suspect]
     Route: 048
     Dates: start: 20030301, end: 20040501
  5. DIGOXIN [Concomitant]
     Route: 065
  6. SYNTHROID [Concomitant]
     Route: 065
  7. WARFARIN [Concomitant]
     Route: 065
  8. LEXAPRO [Concomitant]
     Route: 065

REACTIONS (1)
  - CEREBROVASCULAR ACCIDENT [None]
